FAERS Safety Report 8631769 (Version 2)
Quarter: 2012Q4

REPORT INFORMATION
  Report Type: 
  Country: US (occurrence: US)
  Receive Date: 20120625
  Receipt Date: 20120904
  Transmission Date: 20130627
  Serious: No
  Sender: FDA-Public Use
  Company Number: US-PFIZER INC-2012147878

PATIENT
  Sex: Female

DRUGS (1)
  1. CORTEF [Suspect]
     Indication: ADRENAL INSUFFICIENCY
     Dosage: UNK

REACTIONS (5)
  - Drug ineffective [Unknown]
  - Oesophageal pain [Unknown]
  - Throat irritation [Unknown]
  - Dyspepsia [Unknown]
  - Product quality issue [Unknown]
